FAERS Safety Report 4455041-5 (Version None)
Quarter: 2004Q3

REPORT INFORMATION
  Report Type: 
  Country: None (occurrence: None)
  Receive Date: 20040917
  Receipt Date: 20040826
  Transmission Date: 20050211
  Serious: Yes (Hospitalization, Disabling)
  Sender: FDA-Public Use
  Company Number: USA040568683

PATIENT
  Age: 47 Year
  Sex: Male

DRUGS (6)
  1. ZYPREXA [Suspect]
     Indication: MANIA
     Dosage: 7.5 MG DAY
     Dates: start: 20030301, end: 20031001
  2. CELEXA [Concomitant]
  3. XANAX (ALPRAZOLAM DUM) [Concomitant]
  4. DARVOCET-N 100 [Concomitant]
  5. VERSED [Concomitant]
  6. ALPRAZOLAM [Concomitant]

REACTIONS (19)
  - ABNORMAL BEHAVIOUR [None]
  - ACTIVITIES OF DAILY LIVING IMPAIRED [None]
  - AMNESIA [None]
  - ANOREXIA [None]
  - ANXIETY [None]
  - BACK PAIN [None]
  - DENTAL OPERATION [None]
  - DRUG ABUSER [None]
  - DYSGRAPHIA [None]
  - IMPAIRED WORK ABILITY [None]
  - INSOMNIA [None]
  - MEDICATION ERROR [None]
  - MIGRAINE [None]
  - NECK PAIN [None]
  - PAIN IN EXTREMITY [None]
  - ROAD TRAFFIC ACCIDENT [None]
  - SELF-MEDICATION [None]
  - SUICIDAL IDEATION [None]
  - WEIGHT INCREASED [None]
